FAERS Safety Report 9892775 (Version 1)
Quarter: 2014Q1

REPORT INFORMATION
  Report Type: Spontaneous
  Country: US (occurrence: US)
  Receive Date: 20140212
  Receipt Date: 20140212
  Transmission Date: 20141002
  Serious: Yes (Other)
  Sender: FDA-Public Use
  Company Number: US-CELGENEUS-163-20785-14020148

PATIENT
  Sex: 0

DRUGS (3)
  1. THALOMID [Suspect]
     Indication: COLORECTAL CANCER
     Dosage: 100 MILLIGRAM
     Route: 048
  2. THALOMID [Suspect]
     Indication: APPENDIX CANCER
     Dosage: 200 MILLIGRAM
     Route: 048
  3. THALOMID [Suspect]
     Dosage: 300 MILLIGRAM
     Route: 048

REACTIONS (7)
  - Affective disorder [Unknown]
  - Nervous system disorder [Unknown]
  - Haemorrhage [Unknown]
  - Infection [Unknown]
  - Febrile neutropenia [Unknown]
  - Blood creatinine increased [Unknown]
  - Constipation [Unknown]
